FAERS Safety Report 19936741 (Version 1)
Quarter: 2021Q4

REPORT INFORMATION
  Report Type: Spontaneous
  Country: CN (occurrence: CN)
  Receive Date: 20211008
  Receipt Date: 20211008
  Transmission Date: 20220304
  Serious: Yes (Hospitalization)
  Sender: FDA-Public Use
  Company Number: CN-BAXTER-2021BAX026925

PATIENT
  Age: 53 Year
  Sex: Male
  Weight: 54 kg

DRUGS (16)
  1. CYCLOPHOSPHAMIDE [Suspect]
     Active Substance: CYCLOPHOSPHAMIDE
     Indication: Angioimmunoblastic T-cell lymphoma
     Dosage: CYCLOPHOSPHAMIDE FOR INJECTION 1G + 0.9% SODIUM CHLORIDE INJECTION 250ML ,DAY 1
     Route: 041
     Dates: start: 20201016, end: 20201016
  2. CYCLOPHOSPHAMIDE [Suspect]
     Active Substance: CYCLOPHOSPHAMIDE
     Dosage: DOSE REINTRODUCED, CYCLOPHOSPHAMIDE FOR INJECTION + 0.9% SODIUM CHLORIDE INJECTION
     Route: 041
  3. SODIUM CHLORIDE [Suspect]
     Active Substance: SODIUM CHLORIDE
     Indication: Medication dilution
     Dosage: CYCLOPHOSPHAMIDE FOR INJECTION 1G + 0.9% SODIUM CHLORIDE INJECTION 250ML ,DAY 1
     Route: 041
     Dates: start: 20201016, end: 20201016
  4. SODIUM CHLORIDE [Suspect]
     Active Substance: SODIUM CHLORIDE
     Dosage: VINORELBINE TARTRATE INJECTION 40 MG + 0.9% SODIUM CHLORIDE INJECTION 125ML ,DAY 1
     Route: 041
     Dates: start: 20201016, end: 20201016
  5. SODIUM CHLORIDE [Suspect]
     Active Substance: SODIUM CHLORIDE
     Dosage: ETOPOSIDE INJECTION 0.12G + 0.9% SODIUM CHLORIDE INJECTION 500ML, DAY 1 TO DAY 3
     Route: 041
     Dates: start: 20201016, end: 20201018
  6. SODIUM CHLORIDE [Suspect]
     Active Substance: SODIUM CHLORIDE
     Dosage: METHYLPREDNISOLONE SODIUM SUCCINATE FOR INJECTION 60 MG + 0.9% NACL INJECTION 100ML , DAY 1-5
     Route: 041
     Dates: start: 20201016, end: 20201020
  7. SODIUM CHLORIDE [Suspect]
     Active Substance: SODIUM CHLORIDE
     Dosage: DOSE REINTRODUCED WITH CYCLOPHOSPHAMIDE.
     Route: 041
  8. SODIUM CHLORIDE [Suspect]
     Active Substance: SODIUM CHLORIDE
     Dosage: DOSE REINTRODUCED WITH ETOPOSIDE.
     Route: 041
  9. SODIUM CHLORIDE [Suspect]
     Active Substance: SODIUM CHLORIDE
     Dosage: DOSE REINTRODUCED WITH GAINUO.
     Route: 041
  10. SODIUM CHLORIDE [Suspect]
     Active Substance: SODIUM CHLORIDE
     Dosage: DOSE REINTRODUCED WITH JIAQIANGLONG.
     Route: 041
  11. ETOPOSIDE [Suspect]
     Active Substance: ETOPOSIDE
     Indication: Angioimmunoblastic T-cell lymphoma
     Dosage: ETOPOSIDE INJECTION 0.12G + 0.9% SODIUM CHLORIDE INJECTION 500ML, DAY 1 TO DAY 3
     Route: 041
     Dates: start: 20201016, end: 20201018
  12. ETOPOSIDE [Suspect]
     Active Substance: ETOPOSIDE
     Dosage: DOSE REINTRODUCED, ETOPOSIDE INJECTION + 0.9% SODIUM CHLORIDE INJECTION
     Route: 041
  13. VINORELBINE TARTRATE [Suspect]
     Active Substance: VINORELBINE TARTRATE
     Indication: Angioimmunoblastic T-cell lymphoma
     Dosage: VINORELBINE TARTRATE INJECTION 40 MG + 0.9% SODIUM CHLORIDE INJECTION 125ML ,DAY 1
     Route: 041
     Dates: start: 20201016, end: 20201016
  14. VINORELBINE TARTRATE [Suspect]
     Active Substance: VINORELBINE TARTRATE
     Dosage: DOSE REINTRODUCED, VINORELBINE TARTRATE FOR INJECTION + 0.9% SODIUM CHLORIDE INJECTION
     Route: 041
  15. METHYLPREDNISOLONE SODIUM SUCCINATE [Suspect]
     Active Substance: METHYLPREDNISOLONE SODIUM SUCCINATE
     Indication: Angioimmunoblastic T-cell lymphoma
     Dosage: METHYLPREDNISOLONE SODIUM SUCCINATE FOR INJECTION 60 MG + 0.9% NACL INJECTION 100ML ,DAY 1-5
     Route: 041
     Dates: start: 20201016, end: 20201020
  16. METHYLPREDNISOLONE SODIUM SUCCINATE [Suspect]
     Active Substance: METHYLPREDNISOLONE SODIUM SUCCINATE
     Dosage: DOSE REINTRODUCED, METHYLPREDNISOLONE SODIUM SUCCINATE INJECTION + 0.9% NACL INJECTION
     Route: 041

REACTIONS (1)
  - Myelosuppression [Recovering/Resolving]

NARRATIVE: CASE EVENT DATE: 20201028
